FAERS Safety Report 6038326-0 (Version None)
Quarter: 2009Q1

REPORT INFORMATION
  Report Type: 
  Country: None (occurrence: None)
  Receive Date: 20090113
  Receipt Date: 20080214
  Transmission Date: 20090719
  Serious: Yes (Other)
  Sender: FDA-Public Use
  Company Number: 08-000263

PATIENT
  Sex: Female

DRUGS (1)
  1. FEMCON FE [Suspect]
     Dosage: 0.4MG/35MCG, QD, ORAL
     Route: 048

REACTIONS (1)
  - THROMBOSIS [None]
